FAERS Safety Report 14619267 (Version 1)
Quarter: 2018Q1

REPORT INFORMATION
  Report Type: Spontaneous
  Country: US (occurrence: US)
  Receive Date: 20180309
  Receipt Date: 20180309
  Transmission Date: 20180509
  Serious: No
  Sender: FDA-Public Use
  Company Number: US-ASTRAZENECA-2018SE17336

PATIENT
  Age: 10579 Day
  Sex: Female
  Weight: 116.6 kg

DRUGS (1)
  1. BYDUREON BCISE [Suspect]
     Active Substance: EXENATIDE
     Indication: GLYCOSYLATED HAEMOGLOBIN INCREASED
     Route: 058
     Dates: start: 20180131

REACTIONS (6)
  - Diarrhoea [Unknown]
  - Nausea [Unknown]
  - Medication error [Unknown]
  - Injection site haemorrhage [Recovered/Resolved]
  - Injection site extravasation [Unknown]
  - Vomiting [Unknown]

NARRATIVE: CASE EVENT DATE: 20180131
